FAERS Safety Report 5005282-3 (Version None)
Quarter: 2006Q2

REPORT INFORMATION
  Report Type: 
  Country: None (occurrence: None)
  Receive Date: 20060518
  Receipt Date: 20060119
  Transmission Date: 20061013
  Serious: Yes (Hospitalization)
  Sender: FDA-Public Use
  Company Number: FR-GLAXOSMITHKLINE-B0407583A

PATIENT
  Age: 42 Year
  Sex: Female
  Weight: 56 kg

DRUGS (12)
  1. FORTUM [Suspect]
     Dosage: 3G PER DAY
     Route: 042
     Dates: start: 20051128, end: 20051213
  2. ATARAX [Suspect]
     Route: 048
     Dates: start: 20051122, end: 20051206
  3. TARGOCID [Suspect]
     Dosage: 200MG PER DAY
     Route: 042
     Dates: start: 20051128, end: 20051213
  4. CELLCEPT [Suspect]
     Route: 042
     Dates: start: 20051124, end: 20051214
  5. AERIUS [Suspect]
     Dosage: 1UNIT PER DAY
     Route: 048
     Dates: start: 20051122, end: 20051206
  6. CANCIDAS [Suspect]
     Dosage: 50MG PER DAY
     Route: 042
     Dates: start: 20051125, end: 20051211
  7. MISULBAN [Concomitant]
     Route: 065
     Dates: start: 20050101, end: 20050101
  8. FLUDARA [Concomitant]
     Route: 065
  9. CORTICOSTEROIDS [Concomitant]
     Route: 065
  10. INSULINE [Concomitant]
     Route: 065
  11. RIVOTRIL [Concomitant]
     Route: 065
     Dates: start: 20051207, end: 20051213
  12. VALACYCLOVIR HCL [Concomitant]
     Route: 065
     Dates: start: 20051208, end: 20051214

REACTIONS (7)
  - ALANINE AMINOTRANSFERASE INCREASED [None]
  - ASPARTATE AMINOTRANSFERASE INCREASED [None]
  - FOCAL NODULAR HYPERPLASIA [None]
  - GAMMA-GLUTAMYLTRANSFERASE INCREASED [None]
  - HEPATIC NEOPLASM [None]
  - HEPATITIS [None]
  - NEUROPATHY [None]
